FAERS Safety Report 21974155 (Version 1)
Quarter: 2023Q1

REPORT INFORMATION
  Report Type: Spontaneous
  Country: DE (occurrence: DE)
  Receive Date: 20230209
  Receipt Date: 20230209
  Transmission Date: 20230418
  Serious: Yes (Hospitalization)
  Sender: FDA-Public Use
  Company Number: DE-BoehringerIngelheim-2023-BI-217859

PATIENT
  Age: 43 Year
  Sex: Female
  Weight: 60 kg

DRUGS (1)
  1. CLONIDINE [Suspect]
     Active Substance: CLONIDINE
     Indication: Platelet dysfunction
     Dosage: 1/

REACTIONS (3)
  - Ventricular extrasystoles [Unknown]
  - Electrocardiogram abnormal [Unknown]
  - Bradycardia [Unknown]

NARRATIVE: CASE EVENT DATE: 20180101
